FAERS Safety Report 11380073 (Version 1)
Quarter: 2015Q3

REPORT INFORMATION
  Report Type: Report from Study
  Country: PL (occurrence: PL)
  Receive Date: 20150814
  Receipt Date: 20150814
  Transmission Date: 20151125
  Serious: Yes (Death)
  Sender: FDA-Public Use
  Company Number: PHHY2015PL072125

PATIENT
  Age: 66 Year
  Sex: Male

DRUGS (1)
  1. AFINITOR [Suspect]
     Active Substance: EVEROLIMUS
     Indication: RENAL CANCER
     Dosage: 10 MG, QD
     Route: 065
     Dates: start: 20150518, end: 20150715

REACTIONS (8)
  - Pneumonitis [Unknown]
  - Dysuria [Unknown]
  - Cough [Unknown]
  - Death [Fatal]
  - Pyrexia [Unknown]
  - Hiccups [Unknown]
  - Pneumonia [Unknown]
  - Pain in extremity [Unknown]

NARRATIVE: CASE EVENT DATE: 20150715
